FAERS Safety Report 9091600 (Version 1)
Quarter: 2013Q1

REPORT INFORMATION
  Report Type: Report from Study
  Country: US (occurrence: US)
  Receive Date: 20130201
  Receipt Date: 20130201
  Transmission Date: 20140127
  Serious: No
  Sender: FDA-Public Use
  Company Number: US-ABBOTT-12P-163-1018338-00

PATIENT
  Age: 56 None
  Sex: Female
  Weight: 70.37 kg

DRUGS (8)
  1. HUMIRA [Suspect]
     Indication: MIXED CONNECTIVE TISSUE DISEASE
     Dates: start: 200910
  2. HUMIRA [Suspect]
     Indication: SYSTEMIC LUPUS ERYTHEMATOSUS
  3. PLAQUENIL [Concomitant]
     Indication: MIXED CONNECTIVE TISSUE DISEASE
  4. PLAQUENIL [Concomitant]
     Indication: SYSTEMIC LUPUS ERYTHEMATOSUS
  5. CITALOPRAM [Concomitant]
     Indication: ANXIETY
  6. MINVEY [Concomitant]
     Indication: HORMONE REPLACEMENT THERAPY
  7. SIMVASTATIN [Concomitant]
     Indication: BLOOD CHOLESTEROL INCREASED
  8. METOPROLOL [Concomitant]
     Indication: HYPERTENSION

REACTIONS (2)
  - Stress [Unknown]
  - Arthralgia [Not Recovered/Not Resolved]
